FAERS Safety Report 18637532 (Version 2)
Quarter: 2025Q3

REPORT INFORMATION
  Report Type: Spontaneous
  Country: EU (occurrence: EU)
  Receive Date: 20201218
  Receipt Date: 20250718
  Transmission Date: 20251020
  Serious: Yes (Death)
  Sender: MYLAN
  Company Number: EU-KRKA-PL2020K18333LIT

PATIENT
  Age: 64 Year
  Sex: Female

DRUGS (32)
  1. VANCOMYCIN [Suspect]
     Active Substance: VANCOMYCIN
     Indication: Product used for unknown indication
  2. VANCOMYCIN [Suspect]
     Active Substance: VANCOMYCIN
     Route: 065
  3. VANCOMYCIN [Suspect]
     Active Substance: VANCOMYCIN
     Route: 065
  4. VANCOMYCIN [Suspect]
     Active Substance: VANCOMYCIN
  5. CINACALCET [Suspect]
     Active Substance: CINACALCET
     Indication: Hyperparathyroidism
  6. CINACALCET [Suspect]
     Active Substance: CINACALCET
     Route: 065
  7. CINACALCET [Suspect]
     Active Substance: CINACALCET
     Route: 065
  8. CINACALCET [Suspect]
     Active Substance: CINACALCET
  9. ACETAMINOPHEN [Suspect]
     Active Substance: ACETAMINOPHEN
     Indication: Pain
  10. ACETAMINOPHEN [Suspect]
     Active Substance: ACETAMINOPHEN
     Route: 065
  11. ACETAMINOPHEN [Suspect]
     Active Substance: ACETAMINOPHEN
     Route: 065
  12. ACETAMINOPHEN [Suspect]
     Active Substance: ACETAMINOPHEN
  13. HEPARIN [Suspect]
     Active Substance: HEPARIN SODIUM
     Indication: Product used for unknown indication
  14. HEPARIN [Suspect]
     Active Substance: HEPARIN SODIUM
     Route: 065
  15. HEPARIN [Suspect]
     Active Substance: HEPARIN SODIUM
     Route: 065
  16. HEPARIN [Suspect]
     Active Substance: HEPARIN SODIUM
  17. CIPROFLOXACIN [Suspect]
     Active Substance: CIPROFLOXACIN
     Indication: Product used for unknown indication
  18. CIPROFLOXACIN [Suspect]
     Active Substance: CIPROFLOXACIN
     Route: 065
  19. CIPROFLOXACIN [Suspect]
     Active Substance: CIPROFLOXACIN
     Route: 065
  20. CIPROFLOXACIN [Suspect]
     Active Substance: CIPROFLOXACIN
  21. BUPRENORPHINE [Suspect]
     Active Substance: BUPRENORPHINE
     Indication: Pain
  22. BUPRENORPHINE [Suspect]
     Active Substance: BUPRENORPHINE
     Route: 065
  23. BUPRENORPHINE [Suspect]
     Active Substance: BUPRENORPHINE
     Route: 065
  24. BUPRENORPHINE [Suspect]
     Active Substance: BUPRENORPHINE
  25. CEFTRIAXONE [Suspect]
     Active Substance: CEFTRIAXONE
     Indication: Product used for unknown indication
  26. CEFTRIAXONE [Suspect]
     Active Substance: CEFTRIAXONE
     Route: 065
  27. CEFTRIAXONE [Suspect]
     Active Substance: CEFTRIAXONE
     Route: 065
  28. CEFTRIAXONE [Suspect]
     Active Substance: CEFTRIAXONE
  29. MORPHINE [Suspect]
     Active Substance: MORPHINE
     Indication: Pain
  30. MORPHINE [Suspect]
     Active Substance: MORPHINE
     Route: 065
  31. MORPHINE [Suspect]
     Active Substance: MORPHINE
     Route: 065
  32. MORPHINE [Suspect]
     Active Substance: MORPHINE

REACTIONS (2)
  - Multiple organ dysfunction syndrome [Fatal]
  - Drug ineffective [Fatal]
